FAERS Safety Report 6054240-9 (Version None)
Quarter: 2009Q1

REPORT INFORMATION
  Report Type: 
  Country: None (occurrence: None)
  Receive Date: 20090127
  Receipt Date: 20090121
  Transmission Date: 20090719
  Serious: Yes (Life-Threatening)
  Sender: FDA-Public Use
  Company Number: FR-JNJFOC-20090104640

PATIENT
  Sex: Female

DRUGS (11)
  1. MICONAZOLE NITRATE [Suspect]
     Route: 065
     Dates: start: 20080614, end: 20080629
  2. MICONAZOLE NITRATE [Suspect]
     Indication: OROPHARYNGEAL CANDIDIASIS
     Route: 065
     Dates: start: 20080614, end: 20080629
  3. SINTROM [Interacting]
     Indication: MITRAL VALVE REPLACEMENT
     Dosage: 0.25 DOSE ON EVEN DATES AND 0.5 DOSE ON ODD DATES
     Route: 048
  4. TAHOR [Suspect]
     Indication: DRUG USE FOR UNKNOWN INDICATION
     Dosage: 0.25 DOSE ON EVEN DATES AND 0.5 DOSE ON ODD DATES
     Route: 048
  5. SOLUPRED [Suspect]
     Indication: DRUG USE FOR UNKNOWN INDICATION
     Dosage: 0.25 DOSE ON EVEN DATES AND 0.5 DOSE ON ODD DATES
     Route: 048
  6. ADANCOR [Suspect]
     Indication: DRUG USE FOR UNKNOWN INDICATION
     Dosage: 0.25 DOSE ON EVEN DATES AND 0.5 DOSE ON ODD DATES
     Route: 048
  7. ATACAND [Suspect]
     Indication: DRUG USE FOR UNKNOWN INDICATION
     Dosage: 0.25 DOSE ON EVEN DATES AND 0.5 DOSE ON ODD DATES
     Route: 048
  8. ACETAMINOPHEN [Suspect]
     Indication: DRUG USE FOR UNKNOWN INDICATION
     Dosage: 0.25 DOSE ON EVEN DATES AND 0.5 DOSE ON ODD DATES
     Route: 048
  9. PROPRANOLOL [Concomitant]
  10. HEMIGOXINE [Concomitant]
  11. LEXOMIL [Concomitant]

REACTIONS (3)
  - ANAEMIA [None]
  - DRUG INTERACTION [None]
  - HAEMATOMA [None]
